FAERS Safety Report 6276131-0 (Version None)
Quarter: 2009Q3

REPORT INFORMATION
  Report Type: 
  Country: None (occurrence: None)
  Receive Date: 20090717
  Receipt Date: 20090717
  Transmission Date: 20100115
  Serious: Yes (Disabling)
  Sender: FDA-Public Use
  Company Number: None

PATIENT
  Age: 75 Year
  Sex: Male
  Weight: 77.1115 kg

DRUGS (1)
  1. ENABLEX [Suspect]
     Indication: ENURESIS
     Dosage: 7 MG DAILY MOUTH
     Route: 048
     Dates: start: 20090501

REACTIONS (2)
  - JOINT SWELLING [None]
  - NECK PAIN [None]
